FAERS Safety Report 5109403-3 (Version None)
Quarter: 2006Q3

REPORT INFORMATION
  Report Type: 
  Country: None (occurrence: None)
  Receive Date: 20060918
  Receipt Date: 20060901
  Transmission Date: 20061208
  Serious: Yes (Other)
  Sender: FDA-Public Use
  Company Number: 2006BL004560

PATIENT
  Age: 60 Year
  Sex: Female

DRUGS (8)
  1. LOTEMAX [Suspect]
     Indication: DRY EYE
     Dosage: TWICE A DAY; LEFT EYE
  2. LOTEMAX [Suspect]
     Indication: EYE ALLERGY
     Dosage: TWICE A DAY; LEFT EYE
  3. LOTEMAX [Suspect]
     Indication: KERATITIS
     Dosage: TWICE A DAY; LEFT EYE
  4. XIBROM [Suspect]
     Indication: EYE PAIN
     Dosage: TWICE A DAY; LEFT EYE
     Dates: start: 20060428, end: 20060504
  5. XIBROM [Suspect]
     Indication: KERATITIS
     Dosage: TWICE A DAY; LEFT EYE
     Dates: start: 20060428, end: 20060504
  6. PATANOL [Concomitant]
  7. REFRESH [Concomitant]
  8. NEVANAC [Concomitant]

REACTIONS (6)
  - CATARACT [None]
  - CORNEAL INFECTION [None]
  - CORNEAL PERFORATION [None]
  - CORNEAL SCAR [None]
  - ULCERATIVE KERATITIS [None]
  - UVEITIS [None]
